FAERS Safety Report 4949992-2 (Version None)
Quarter: 2006Q1

REPORT INFORMATION
  Report Type: 
  Country: None (occurrence: None)
  Receive Date: 20060316
  Receipt Date: 20060303
  Transmission Date: 20060701
  Serious: Yes (Death, Hospitalization, Other)
  Sender: FDA-Public Use
  Company Number: 2006033154

PATIENT
  Age: 68 Year
  Sex: Male
  Weight: 78 kg

DRUGS (11)
  1. SUTENT [Suspect]
     Indication: METASTATIC RENAL CELL CARCINOMA
     Dosage: 50 MG (50 MG, 1 IN 1 D), ORAL
     Route: 048
     Dates: start: 20051026, end: 20060129
  2. OMEPRAZOLE [Concomitant]
  3. LOSARTAN POTASSIUM [Concomitant]
  4. METFORMIN HCL [Concomitant]
  5. DIAMICRON (GLICLAZIDE) [Concomitant]
  6. ASPIRIN [Concomitant]
  7. LORAZEPAM [Concomitant]
  8. NADROPARIN CALCIUM (NADROPARIN CALCIUM) [Concomitant]
  9. NITROGLYCERIN [Concomitant]
  10. CEFOTAXIME SODIUM [Concomitant]
  11. FUROSEMIDE [Concomitant]

REACTIONS (8)
  - ASTHENIA [None]
  - CEREBRAL ISCHAEMIA [None]
  - CONFUSIONAL STATE [None]
  - FIBRIN D DIMER INCREASED [None]
  - GENERAL PHYSICAL HEALTH DETERIORATION [None]
  - LETHARGY [None]
  - PLATELET COUNT DECREASED [None]
  - TROPONIN INCREASED [None]
